FAERS Safety Report 9785590 (Version 2)
Quarter: 2014Q1

REPORT INFORMATION
  Report Type: Report from Study
  Country: JP (occurrence: JP)
  Receive Date: 20131227
  Receipt Date: 20140303
  Transmission Date: 20141002
  Serious: Yes (Death, Hospitalization)
  Sender: FDA-Public Use
  Company Number: JP-SA-2013SA134288

PATIENT
  Age: 56 Year
  Sex: Male
  Weight: 67.85 kg

DRUGS (15)
  1. THYMOGLOBULINE [Suspect]
     Indication: ACUTE GRAFT VERSUS HOST DISEASE
     Route: 042
     Dates: start: 20120501, end: 20120501
  2. THYMOGLOBULINE [Suspect]
     Indication: ACUTE GRAFT VERSUS HOST DISEASE
     Route: 042
     Dates: start: 20120406, end: 20120406
  3. CORTICOSTEROID NOS [Concomitant]
     Indication: ACUTE GRAFT VERSUS HOST DISEASE
     Route: 065
     Dates: start: 20110905
  4. PROGRAF [Concomitant]
     Indication: ACUTE GRAFT VERSUS HOST DISEASE
     Route: 065
     Dates: end: 20120416
  5. SOLU-MEDROL [Concomitant]
     Indication: PROPHYLAXIS AGAINST GRAFT VERSUS HOST DISEASE
     Route: 065
     Dates: end: 20120427
  6. ALEVIATIN [Concomitant]
     Indication: CONVULSION
     Route: 065
     Dates: end: 20120417
  7. ATELEC [Concomitant]
     Indication: HYPERTENSION
     Route: 065
     Dates: end: 20120515
  8. GRAN [Concomitant]
     Indication: HISTIOCYTOSIS HAEMATOPHAGIC
     Dosage: SYRINGE
     Route: 065
     Dates: end: 20120522
  9. REMINARON [Concomitant]
     Route: 065
     Dates: start: 20120417, end: 20120523
  10. GASTER [Concomitant]
     Route: 065
     Dates: start: 20120417, end: 20120531
  11. AMBISOME [Concomitant]
     Indication: PNEUMONIA ASPIRATION
     Route: 065
     Dates: start: 20120412, end: 20120423
  12. GANCICLOVIR [Concomitant]
     Indication: CYTOMEGALOVIRUS TEST POSITIVE
     Route: 065
     Dates: end: 20120521
  13. MIRACLID [Concomitant]
     Route: 065
     Dates: start: 20120515, end: 20120522
  14. NICARDIPINE HYDROCHLORIDE [Concomitant]
     Indication: HYPERTENSION
     Route: 065
     Dates: start: 20120429, end: 20120523
  15. FUNGUARD [Concomitant]
     Indication: INFECTION PROPHYLAXIS
     Route: 065

REACTIONS (2)
  - Pneumonia bacterial [Fatal]
  - Idiopathic pneumonia syndrome [Recovering/Resolving]
